FAERS Safety Report 10050798 (Version 1)
Quarter: 2014Q2

REPORT INFORMATION
  Report Type: Spontaneous
  Country: US (occurrence: US)
  Receive Date: 20140401
  Receipt Date: 20140401
  Transmission Date: 20141212
  Serious: No
  Sender: FDA-Public Use
  Company Number: US-ASTRAZENECA-2013SE77570

PATIENT
  Age: 89 Year
  Sex: Female
  Weight: 54.4 kg

DRUGS (18)
  1. NEXIUM [Suspect]
     Indication: GASTROOESOPHAGEAL REFLUX DISEASE
     Route: 048
     Dates: start: 2012
  2. OMEPRAZOLE [Suspect]
     Indication: GASTROOESOPHAGEAL REFLUX DISEASE
     Route: 048
     Dates: start: 2007, end: 2012
  3. PRILOSEC OTC [Suspect]
     Indication: GASTROOESOPHAGEAL REFLUX DISEASE
     Dosage: BID
     Route: 048
     Dates: start: 2005, end: 2007
  4. MORPHINE SULFATE [Suspect]
     Indication: BACK DISORDER
     Route: 048
     Dates: start: 201309
  5. DEXLANSOPRAZOLE [Suspect]
     Route: 065
  6. CELEBREX [Concomitant]
     Indication: ARTHRITIS
     Route: 048
     Dates: start: 2008
  7. PREDNISONE [Concomitant]
     Indication: ARTHRITIS
     Route: 048
     Dates: start: 2011
  8. ONDANSETRON [Concomitant]
     Indication: NAUSEA
     Route: 048
     Dates: start: 201310
  9. MS IR [Concomitant]
     Indication: BACK PAIN
     Route: 048
     Dates: start: 201309
  10. LEVOTHYROXINE [Concomitant]
     Indication: THYROID DISORDER
     Dosage: 100MCG DAILY
     Route: 048
     Dates: start: 1973
  11. LOSARTAN [Concomitant]
     Indication: BLOOD PRESSURE ABNORMAL
     Route: 048
     Dates: start: 201304
  12. MIRTAZAPINE [Concomitant]
     Indication: SLEEP DISORDER
     Route: 048
     Dates: start: 2012
  13. XANAX [Concomitant]
     Indication: SLEEP DISORDER
     Route: 048
     Dates: start: 2012
  14. COSOPT [Concomitant]
     Indication: GLAUCOMA
     Dosage: 22.3MG/6.8MG/1ML QID
     Route: 050
     Dates: start: 2008
  15. ALPHAGEN [Concomitant]
     Indication: GLAUCOMA
     Dosage: 0.1% QID
     Route: 050
     Dates: start: 2008
  16. LUMIGAN [Concomitant]
     Indication: GLAUCOMA
     Dosage: 0.01% QID
     Route: 050
     Dates: start: 2008
  17. FML [Concomitant]
     Indication: GLAUCOMA
     Dosage: 0.1% QID
     Route: 050
     Dates: start: 2008
  18. LIDODERM PATCH [Concomitant]
     Indication: PAIN
     Dosage: PRN
     Route: 048
     Dates: start: 2009

REACTIONS (7)
  - Diarrhoea [Recovered/Resolved]
  - Gastrooesophageal reflux disease [Not Recovered/Not Resolved]
  - Regurgitation [Not Recovered/Not Resolved]
  - Choking [Not Recovered/Not Resolved]
  - Dysphagia [Not Recovered/Not Resolved]
  - Back pain [Not Recovered/Not Resolved]
  - Drug ineffective [Unknown]
